FAERS Safety Report 9862097 (Version 3)
Quarter: 2014Q2

REPORT INFORMATION
  Report Type: Spontaneous
  Country: JP (occurrence: JP)
  Receive Date: 20140203
  Receipt Date: 20140505
  Transmission Date: 20141212
  Serious: Yes (Hospitalization)
  Sender: FDA-Public Use
  Company Number: JP-JNJFOC-20140115642

PATIENT
  Age: 71 Year
  Sex: Female
  Weight: 60 kg

DRUGS (13)
  1. DUROTEP MT [Suspect]
     Indication: BACK PAIN
     Route: 062
     Dates: start: 20131209, end: 20131215
  2. DUROTEP MT [Suspect]
     Indication: BACK PAIN
     Route: 062
     Dates: start: 20131203, end: 20131208
  3. DUROTEP MT [Suspect]
     Indication: BACK PAIN
     Route: 062
     Dates: start: 20131030, end: 20131202
  4. DUROTEP MT [Suspect]
     Indication: BACK PAIN
     Route: 062
     Dates: start: 20131016, end: 20131029
  5. DUROTEP MT [Suspect]
     Indication: BACK PAIN
     Route: 062
     Dates: start: 20131002, end: 20131015
  6. DUROTEP MT [Suspect]
     Indication: BACK PAIN
     Route: 062
     Dates: start: 20130918, end: 20131001
  7. TRAMCET [Concomitant]
     Route: 048
     Dates: end: 20130917
  8. FOSAMAC [Concomitant]
     Indication: OSTEOPOROSIS
     Route: 048
     Dates: start: 20131206
  9. NEXIUM [Concomitant]
     Indication: PROPHYLAXIS
     Route: 048
     Dates: start: 20130807
  10. REBAMIPIDE [Concomitant]
     Indication: PROPHYLAXIS
     Route: 048
     Dates: start: 20130807
  11. VOLTAREN [Concomitant]
     Indication: LUMBAR SPINAL STENOSIS
     Route: 048
     Dates: start: 20130807
  12. CALONAL [Concomitant]
     Indication: LUMBAR SPINAL STENOSIS
     Route: 048
     Dates: start: 20130807
  13. ELCITONIN [Concomitant]
     Indication: OSTEOPOROSIS
     Route: 030
     Dates: start: 20130807

REACTIONS (4)
  - Dysarthria [Recovering/Resolving]
  - Hallucination [Recovering/Resolving]
  - Fall [Not Recovered/Not Resolved]
  - Feeling abnormal [Unknown]
